FAERS Safety Report 4720931-2 (Version None)
Quarter: 2005Q3

REPORT INFORMATION
  Report Type: 
  Country: None (occurrence: None)
  Receive Date: 20050719
  Receipt Date: 20050120
  Transmission Date: 20060218
  Serious: Yes (Other)
  Sender: FDA-Public Use
  Company Number: 2005018808

PATIENT
  Age: 75 Year
  Sex: Male

DRUGS (1)
  1. CELEBREX [Suspect]
     Indication: ILL-DEFINED DISORDER
     Dosage: 400 MG (200 MG, 2 IN 1 D)

REACTIONS (1)
  - CARDIAC FAILURE CONGESTIVE [None]
